FAERS Safety Report 25539187 (Version 2)
Quarter: 2025Q3

REPORT INFORMATION
  Report Type: Spontaneous
  Country: US (occurrence: US)
  Receive Date: 20250710
  Receipt Date: 20250816
  Transmission Date: 20251020
  Serious: No
  Sender: LEADING PHARMA
  Company Number: US-LEADINGPHARMA-US-2025LEASPO00118

PATIENT
  Age: 67 Year
  Sex: Female
  Weight: 135 kg

DRUGS (2)
  1. ESTERIFIED ESTROGENS AND METHYLTESTOSTERONE [Suspect]
     Active Substance: ESTROGENS, CONJUGATED\ESTROGENS, ESTERIFIED\ESTRONE SODIUM SULFATE\METHYLTESTOSTERONE
     Indication: Night sweats
     Route: 065
     Dates: start: 202503
  2. ESTERIFIED ESTROGENS AND METHYLTESTOSTERONE [Suspect]
     Active Substance: ESTROGENS, CONJUGATED\ESTROGENS, ESTERIFIED\ESTRONE SODIUM SULFATE\METHYLTESTOSTERONE
     Indication: Menopause

REACTIONS (2)
  - Drug ineffective [Unknown]
  - Product substitution issue [Unknown]
